FAERS Safety Report 14387253 (Version 2)
Quarter: 2018Q1

REPORT INFORMATION
  Report Type: Spontaneous
  Country: US (occurrence: US)
  Receive Date: 20180115
  Receipt Date: 20180205
  Transmission Date: 20180509
  Serious: Yes (Hospitalization)
  Sender: FDA-Public Use
  Company Number: US-VIFOR (INTERNATIONAL) INC.-VIT-2018-00315

PATIENT
  Sex: Male

DRUGS (16)
  1. VELTASSA [Suspect]
     Active Substance: PATIROMER
     Route: 048
     Dates: start: 20180117, end: 201801
  2. FERROUS SULFATE. [Concomitant]
     Active Substance: FERROUS SULFATE
  3. SODIUM BICARBONATE. [Concomitant]
     Active Substance: SODIUM BICARBONATE
  4. TACROLIMUS. [Concomitant]
     Active Substance: TACROLIMUS
  5. VELTASSA [Suspect]
     Active Substance: PATIROMER
     Indication: HYPERKALAEMIA
     Route: 048
     Dates: start: 20160415
  6. CARVEDILOL. [Concomitant]
     Active Substance: CARVEDILOL
  7. FUROSEMIDE. [Concomitant]
     Active Substance: FUROSEMIDE
  8. GABAPENTIN. [Concomitant]
     Active Substance: GABAPENTIN
  9. TAMSULOSIN HYDROCHLORIDE. [Concomitant]
     Active Substance: TAMSULOSIN HYDROCHLORIDE
  10. PREDNISONE. [Concomitant]
     Active Substance: PREDNISONE
  11. DIOVAN [Concomitant]
     Active Substance: VALSARTAN
  12. HUMULIN N [Concomitant]
     Active Substance: INSULIN HUMAN
  13. COLECALCIFEROL [Concomitant]
     Active Substance: CHOLECALCIFEROL
  14. HUMALOG [Concomitant]
     Active Substance: INSULIN LISPRO
  15. MYCOPHENOLATE MOFETIL. [Concomitant]
     Active Substance: MYCOPHENOLATE MOFETIL
  16. HYDROCHLOROTHIAZIDE. [Concomitant]
     Active Substance: HYDROCHLOROTHIAZIDE

REACTIONS (2)
  - Blood potassium decreased [Unknown]
  - Hospitalisation [Unknown]
